FAERS Safety Report 23421680 (Version 2)
Quarter: 2024Q1

REPORT INFORMATION
  Report Type: Spontaneous
  Country: ES (occurrence: ES)
  Receive Date: 20240119
  Receipt Date: 20240201
  Transmission Date: 20240409
  Serious: Yes (Other)
  Sender: FDA-Public Use
  Company Number: ES-UCBSA-2024002264

PATIENT
  Age: 72 Year
  Sex: Female

DRUGS (1)
  1. EVENITY [Suspect]
     Active Substance: ROMOSOZUMAB-AQQG
     Indication: Osteoporosis
     Dosage: 2 DOSAGE FORM, QMO
     Route: 058
     Dates: start: 20231115

REACTIONS (3)
  - Hypertensive crisis [Unknown]
  - Blood cholesterol increased [Unknown]
  - Hyperhidrosis [Unknown]

NARRATIVE: CASE EVENT DATE: 20231115
